FAERS Safety Report 14973771 (Version 3)
Quarter: 2018Q3

REPORT INFORMATION
  Report Type: Report from Study
  Country: NL (occurrence: NL)
  Receive Date: 20180605
  Receipt Date: 20180822
  Transmission Date: 20181010
  Serious: Yes (Death)
  Sender: FDA-Public Use
  Company Number: NL-PFIZER INC-2018224145

PATIENT

DRUGS (2)
  1. DALTEPARIN SODIUM [Suspect]
     Active Substance: DALTEPARIN SODIUM
     Indication: EMBOLISM VENOUS
     Dosage: 200 IU/KG, 1X/DAY (WITH A MAXIMUM DOSE OF 18,000 IU DURING THE FIRST 30 DAYS)
     Route: 058
  2. DALTEPARIN SODIUM [Suspect]
     Active Substance: DALTEPARIN SODIUM
     Dosage: 150 IU/KG, 1X/DAY
     Route: 058

REACTIONS (1)
  - Lower gastrointestinal haemorrhage [Fatal]
